FAERS Safety Report 7149822-7 (Version None)
Quarter: 2010Q4

REPORT INFORMATION
  Report Type: 
  Country: None (occurrence: None)
  Receive Date: 20101210
  Receipt Date: 20101130
  Transmission Date: 20110411
  Serious: No
  Sender: FDA-Public Use
  Company Number: US-BIOGENIDEC-2010BI042343

PATIENT
  Age: 56 Year
  Sex: Male

DRUGS (3)
  1. TYSABRI [Suspect]
     Indication: MULTIPLE SCLEROSIS
     Route: 042
     Dates: start: 20071113
  2. LYRICA [Concomitant]
     Indication: PARAESTHESIA
     Route: 048
  3. LAMICTAL [Concomitant]
     Indication: PARAESTHESIA
     Route: 048

REACTIONS (6)
  - BURNING SENSATION [None]
  - COORDINATION ABNORMAL [None]
  - DYSAESTHESIA [None]
  - MUSCULAR WEAKNESS [None]
  - PAIN IN EXTREMITY [None]
  - PARAESTHESIA [None]
